FAERS Safety Report 25932111 (Version 3)
Quarter: 2025Q4

REPORT INFORMATION
  Report Type: Spontaneous
  Country: JP (occurrence: JP)
  Receive Date: 20251016
  Receipt Date: 20251120
  Transmission Date: 20260117
  Serious: No
  Sender: BRISTOL-MYERS SQUIBB COMPANY
  Company Number: JP-BRISTOL-MYERS SQUIBB COMPANY-2025-138574

PATIENT

DRUGS (1)
  1. ORENCIA [Suspect]
     Active Substance: ABATACEPT
     Indication: Product used for unknown indication
     Dosage: REPORTED POTENCY / STRENGTH: 125 MG/1 ML
     Route: 058

REACTIONS (3)
  - Device operational issue [Unknown]
  - Device safety feature issue [Unknown]
  - No adverse event [Unknown]
